FAERS Safety Report 15122650 (Version 3)
Quarter: 2018Q3

REPORT INFORMATION
  Report Type: Spontaneous
  Country: BR (occurrence: BR)
  Receive Date: 20180709
  Receipt Date: 20180723
  Transmission Date: 20181010
  Serious: Yes (Hospitalization, Other)
  Sender: FDA-Public Use
  Company Number: BR-B.I. PHARMACEUTICALS,INC./RIDGEFIELD-2018-BI-034839

PATIENT
  Age: 69 Year
  Sex: Female

DRUGS (3)
  1. GILOTRIF [Suspect]
     Active Substance: AFATINIB
     Route: 065
  2. GILOTRIF [Suspect]
     Active Substance: AFATINIB
     Indication: LUNG ADENOCARCINOMA
     Route: 065
  3. GILOTRIF [Suspect]
     Active Substance: AFATINIB
     Indication: GENE MUTATION
     Dosage: USE DURING 3 DAYS AND 1 DAY OFF
     Route: 065

REACTIONS (8)
  - Diarrhoea [Recovered/Resolved]
  - Diabetic ketoacidosis [Recovered/Resolved]
  - Weight decreased [Recovered/Resolved]
  - Blood potassium increased [Recovered/Resolved]
  - Rash [Recovered/Resolved]
  - Dehydration [Recovered/Resolved]
  - Hyperglycaemia [Recovered/Resolved]
  - Pancreatitis acute [Recovered/Resolved]
